FAERS Safety Report 13230583 (Version 1)
Quarter: 2017Q1

REPORT INFORMATION
  Report Type: Spontaneous
  Country: US (occurrence: US)
  Receive Date: 20170214
  Receipt Date: 20170214
  Transmission Date: 20170428
  Serious: Yes (Other)
  Sender: FDA-Public Use
  Company Number: US-BRISTOL-MYERS SQUIBB COMPANY-BMS-2017-010168

PATIENT
  Age: 84 Year
  Sex: Female
  Weight: 66.2 kg

DRUGS (1)
  1. OPDIVO [Suspect]
     Active Substance: NIVOLUMAB
     Indication: HODGKIN^S DISEASE
     Dosage: UNK
     Route: 042
     Dates: start: 20160913

REACTIONS (5)
  - Device related infection [Unknown]
  - Oropharyngeal pain [Unknown]
  - Pyrexia [Unknown]
  - Tonsillitis [Unknown]
  - Injection site swelling [Unknown]

NARRATIVE: CASE EVENT DATE: 20161206
